FAERS Safety Report 23747273 (Version 1)
Quarter: 2024Q2

REPORT INFORMATION
  Report Type: Spontaneous
  Country: US (occurrence: US)
  Receive Date: 20240416
  Receipt Date: 20240416
  Transmission Date: 20240716
  Serious: No
  Sender: FDA-Public Use
  Company Number: US-GALDERMA-US2024001187

PATIENT

DRUGS (4)
  1. PROACTIV MD ADAPALENE ACNE TREATMENT [Suspect]
     Active Substance: ADAPALENE
     Indication: Product used for unknown indication
     Dosage: 1 DOSAGE FORM, USED ONCE
     Route: 061
     Dates: start: 202312, end: 202312
  2. Proactiv MD Ultra Gentle Cleanser [Concomitant]
     Indication: Product used for unknown indication
     Dosage: 1 DOSAGE FORM, USED ONCE
     Route: 061
     Dates: start: 202312, end: 202312
  3. Proactiv MD Ultra Hydrating Moisturizer [Concomitant]
     Indication: Product used for unknown indication
     Dosage: 1 DOSAGE FORM, USED ONCE
     Route: 061
     Dates: start: 202312, end: 202312
  4. Proactiv Zits Happen Patches [Concomitant]
     Indication: Product used for unknown indication
     Dosage: 1 DOSAGE FORM, USED ONCE
     Route: 061
     Dates: start: 202312, end: 202312

REACTIONS (2)
  - Hypersensitivity [Recovered/Resolved]
  - Rash [Recovered/Resolved]

NARRATIVE: CASE EVENT DATE: 20231201
